FAERS Safety Report 7420657-0 (Version None)
Quarter: 2011Q2

REPORT INFORMATION
  Report Type: 
  Country: None (occurrence: None)
  Receive Date: 20110418
  Receipt Date: 20110412
  Transmission Date: 20111010
  Serious: Yes (Other)
  Sender: FDA-Public Use
  Company Number: US-PFIZER INC-US-WYE-H07880109

PATIENT
  Sex: Female
  Weight: 68 kg

DRUGS (3)
  1. ALLEGRA [Concomitant]
     Indication: SEASONAL ALLERGY
     Dosage: UNK
     Dates: start: 19740101, end: 20090101
  2. PREMARIN [Suspect]
     Indication: HORMONE REPLACEMENT THERAPY
     Dosage: 0.625 MG, UNK
     Route: 048
     Dates: start: 19860101, end: 19970101
  3. PROVERA [Suspect]
     Indication: HORMONE REPLACEMENT THERAPY
     Dosage: 2.5 MG, UNK
     Route: 048
     Dates: start: 19860101, end: 19970101

REACTIONS (1)
  - BREAST CANCER FEMALE [None]
